FAERS Safety Report 7964444-3 (Version None)
Quarter: 2011Q4

REPORT INFORMATION
  Report Type: 
  Country: None (occurrence: None)
  Receive Date: 20111208
  Receipt Date: 20111128
  Transmission Date: 20120403
  Serious: Yes (Other)
  Sender: FDA-Public Use
  Company Number: FR-JNJFOC-20111012191

PATIENT
  Age: 34 Year
  Sex: Female

DRUGS (5)
  1. REMICADE [Suspect]
     Route: 042
     Dates: start: 20110501
  2. PROZAC [Concomitant]
     Dates: start: 20110301
  3. HYDROCORTISONE [Concomitant]
     Dates: start: 20110501, end: 20110801
  4. REMICADE [Suspect]
     Indication: COLITIS ULCERATIVE
     Dosage: 5TH INFLIXIMAB INFUSION
     Route: 042
     Dates: start: 20110801, end: 20110801
  5. ACETAMINOPHEN [Concomitant]

REACTIONS (1)
  - ECZEMA [None]
